FAERS Safety Report 5086697-4 (Version None)
Quarter: 2006Q3

REPORT INFORMATION
  Report Type: 
  Country: None (occurrence: None)
  Receive Date: 20060823
  Receipt Date: 20060608
  Transmission Date: 20061208
  Serious: No
  Sender: FDA-Public Use
  Company Number: US-GLAXOSMITHKLINE-A0608387A

PATIENT
  Age: 52 Year
  Sex: Male

DRUGS (4)
  1. MALARONE [Suspect]
     Indication: MALARIA
     Dosage: 1TAB PER DAY
     Route: 048
     Dates: start: 20060207, end: 20060209
  2. LEXAPRO [Suspect]
     Indication: DEPRESSION
     Dosage: 10MG PER DAY
     Route: 048
     Dates: start: 20051201
  3. DIOVAN [Concomitant]
     Dosage: 320MG TWICE PER DAY
     Route: 048
     Dates: start: 20040101
  4. HYDROCHLOROTHIAZIDE [Concomitant]
     Dosage: 25MG TWICE PER DAY
     Route: 048
     Dates: start: 20040101

REACTIONS (3)
  - AMNESIA [None]
  - DISORIENTATION [None]
  - FALL [None]
